FAERS Safety Report 20169270 (Version 1)
Quarter: 2021Q4

REPORT INFORMATION
  Report Type: Spontaneous
  Country: GB (occurrence: GB)
  Receive Date: 20211210
  Receipt Date: 20211210
  Transmission Date: 20220304
  Serious: Yes (Other)
  Sender: FDA-Public Use
  Company Number: None

PATIENT
  Age: 73 Year
  Sex: Male
  Weight: 110 kg

DRUGS (10)
  1. CAPECITABINE [Suspect]
     Active Substance: CAPECITABINE
     Indication: Product used for unknown indication
     Dates: start: 20211126
  2. ASPIRIN [Concomitant]
     Active Substance: ASPIRIN
     Dosage: TO HELP PREV...
     Dates: start: 20210816
  3. DIAZEPAM [Concomitant]
     Active Substance: DIAZEPAM
     Dosage: WHEN REQUIRED
     Dates: start: 20210816
  4. HYDROCORTISONE [Concomitant]
     Active Substance: HYDROCORTISONE
     Dosage: APPLY THINLY ONCE OR TWICE DAILY (MILD STEROID)
     Dates: start: 20181214
  5. KETOCONAZOLE [Concomitant]
     Active Substance: KETOCONAZOLE
     Dosage: MOST EFFECTIVE LEFT ON OVERNIGHT 3X PER WEEK
     Dates: start: 20181214
  6. LANSOPRAZOLE [Concomitant]
     Active Substance: LANSOPRAZOLE
     Dates: start: 20210816
  7. MOMETASONE [Concomitant]
     Active Substance: MOMETASONE
     Dosage: APPLY AT NIGHT
     Dates: start: 20180117
  8. NYSTATIN [Concomitant]
     Active Substance: NYSTATIN
     Dosage: TO BE RINSED AROUND THE MOUTH AND THEN SWAL...
     Dates: start: 20210914, end: 20210921
  9. ACETAMINOPHEN [Concomitant]
     Active Substance: ACETAMINOPHEN
     Dosage: ONE-TWO TO BE TAKEN UPTO A MAXIMUM OF ...
     Dates: start: 20210630
  10. PREGABALIN [Concomitant]
     Active Substance: PREGABALIN
     Dates: start: 20210816

REACTIONS (1)
  - Arteriospasm coronary [Recovered/Resolved]

NARRATIVE: CASE EVENT DATE: 20211126
